FAERS Safety Report 19005809 (Version 1)
Quarter: 2021Q1

REPORT INFORMATION
  Report Type: Spontaneous
  Country: US (occurrence: US)
  Receive Date: 20210314
  Receipt Date: 20210314
  Transmission Date: 20210420
  Serious: Yes (Death)
  Sender: FDA-Public Use
  Company Number: US-STRIDES ARCOLAB LIMITED-2021SP003044

PATIENT
  Age: 71 Year
  Sex: Male

DRUGS (7)
  1. TACROLIMUS. [Suspect]
     Active Substance: TACROLIMUS
     Indication: RENAL TRANSPLANT
     Dosage: UNK
     Route: 065
     Dates: start: 2009, end: 201902
  2. AZATHIOPRINE. [Suspect]
     Active Substance: AZATHIOPRINE
     Dosage: UNK
     Route: 065
     Dates: end: 201902
  3. MYCOPHENOLATE MOFETIL. [Suspect]
     Active Substance: MYCOPHENOLATE MOFETIL
     Indication: RENAL TRANSPLANT
     Dosage: UNK
     Route: 065
     Dates: start: 2009, end: 2009
  4. THYMOGLOBULIN [Suspect]
     Active Substance: LAPINE T-LYMPHOCYTE IMMUNE GLOBULIN
     Indication: RENAL TRANSPLANT
     Dosage: UNK
     Route: 065
     Dates: start: 2009
  5. PREDNISOLONE. [Suspect]
     Active Substance: PREDNISOLONE
     Dosage: UNK
     Route: 065
     Dates: start: 201902
  6. PREDNISOLONE. [Suspect]
     Active Substance: PREDNISOLONE
     Indication: RENAL TRANSPLANT
     Dosage: UNK
     Route: 065
     Dates: start: 2009
  7. AZATHIOPRINE. [Suspect]
     Active Substance: AZATHIOPRINE
     Indication: RENAL TRANSPLANT
     Dosage: UNK
     Route: 065
     Dates: start: 2009, end: 201902

REACTIONS (2)
  - Diffuse large B-cell lymphoma [Fatal]
  - Post transplant lymphoproliferative disorder [Fatal]

NARRATIVE: CASE EVENT DATE: 201901
